FAERS Safety Report 6396860-8 (Version None)
Quarter: 2009Q4

REPORT INFORMATION
  Report Type: 
  Country: None (occurrence: None)
  Receive Date: 20091012
  Receipt Date: 20090609
  Transmission Date: 20100525
  Serious: No
  Sender: FDA-Public Use
  Company Number: US-ASTRAZENECA-2009UW14795

PATIENT
  Age: 77 Year
  Sex: Male

DRUGS (4)
  1. SYMBICORT [Suspect]
     Indication: ASTHMA
     Dosage: 80/4.5 MG 2 PUFFS TWO TIMES A DAY
     Route: 055
     Dates: start: 20090601
  2. SYMBICORT [Suspect]
     Indication: CHRONIC OBSTRUCTIVE PULMONARY DISEASE
     Dosage: 80/4.5 MG 2 PUFFS TWO TIMES A DAY
     Route: 055
     Dates: start: 20090601
  3. PROVENTIL-HFA [Concomitant]
  4. SPIRIVA [Concomitant]

REACTIONS (3)
  - DYSPHONIA [None]
  - MUSCLE SPASMS [None]
  - PAIN IN EXTREMITY [None]
